FAERS Safety Report 8741125 (Version 5)
Quarter: 2013Q2

REPORT INFORMATION
  Report Type: Spontaneous
  Country: US (occurrence: US)
  Receive Date: 20120824
  Receipt Date: 20130522
  Transmission Date: 20140414
  Serious: No
  Sender: FDA-Public Use
  Company Number: US-ASTRAZENECA-2012SE03394

PATIENT
  Age: 79 Year
  Sex: Female
  Weight: 59 kg

DRUGS (9)
  1. SYMBICORT PMDI [Suspect]
     Indication: ASTHMA
     Dosage: UNKNOWN FREQUENCY
     Route: 055
  2. SYMBICORT PMDI [Suspect]
     Indication: ASTHMA
     Dosage: 320 MCG, BID
     Route: 055
     Dates: start: 2009
  3. ATROVENT [Suspect]
     Route: 065
  4. SPIRIVA [Concomitant]
  5. SINGULAIR [Concomitant]
     Indication: ASTHMA
     Dosage: DAILY
  6. BABY ASA [Concomitant]
     Dosage: DAILY
  7. ZETIA [Concomitant]
     Indication: BLOOD CHOLESTEROL INCREASED
     Dosage: DAILY
  8. SIMVASTATIN [Concomitant]
     Indication: BLOOD CHOLESTEROL INCREASED
     Dosage: DAILY
  9. BONIVA [Concomitant]

REACTIONS (9)
  - Hearing impaired [Unknown]
  - Dyspnoea [Unknown]
  - Asthenia [Unknown]
  - Dyspnoea [Recovered/Resolved]
  - Adverse drug reaction [Unknown]
  - Asthma [Unknown]
  - Muscle spasms [Unknown]
  - Circumstance or information capable of leading to medication error [Unknown]
  - Drug dose omission [Unknown]
